FAERS Safety Report 8602477-4 (Version None)
Quarter: 2012Q3

REPORT INFORMATION
  Report Type: 
  Country: None (occurrence: None)
  Receive Date: 20120817
  Receipt Date: 20120809
  Transmission Date: 20120928
  Serious: Yes (Hospitalization)
  Sender: FDA-Public Use
  Company Number: JP-BAYER-2012-081500

PATIENT
  Age: 66 Year
  Sex: Male
  Weight: 86 kg

DRUGS (9)
  1. LIVACT [Concomitant]
     Dosage: DAILY DOSE 12.45 G
     Route: 048
  2. GLAKAY [Concomitant]
     Dosage: DAILY DOSE 45 MG
     Route: 048
  3. NEXAVAR [Suspect]
     Dosage: 200 UNK, UNK
     Dates: start: 20120613, end: 20120713
  4. CARVEDILOL [Concomitant]
     Dosage: DAILY DOSE 10 MG
     Route: 048
  5. OMEPRAZOLE [Concomitant]
     Dosage: DAILY DOSE 20 MG
     Route: 048
  6. PYDOXAL [Concomitant]
     Dosage: DAILY DOSE 60 MG
     Route: 048
  7. NEXAVAR [Suspect]
     Indication: HEPATIC NEOPLASM MALIGNANT
     Dosage: DAILY DOSE 200 MG
     Route: 048
     Dates: start: 20120525, end: 20120529
  8. NEXAVAR [Suspect]
     Dosage: 200 MG, QOD
     Dates: start: 20120529, end: 20120613
  9. LACTULOSE [Concomitant]
     Dosage: DAILY DOSE 40 ML
     Route: 048

REACTIONS (1)
  - HEPATIC FUNCTION ABNORMAL [None]
